FAERS Safety Report 9520088 (Version 1)
Quarter: 2013Q3

REPORT INFORMATION
  Report Type: Report from Study
  Country: CA (occurrence: CA)
  Receive Date: 20130912
  Receipt Date: 20130912
  Transmission Date: 20140515
  Serious: Yes (Hospitalization, Other)
  Sender: FDA-Public Use
  Company Number: PHHY2013CA100419

PATIENT
  Age: 34 Year
  Sex: Female

DRUGS (5)
  1. CLOZARIL [Suspect]
     Indication: SCHIZOPHRENIA
     Dosage: 150 MG, QD
     Route: 048
     Dates: start: 20130508
  2. CLOZARIL [Suspect]
     Dosage: 200 MG, BID
  3. NACL [Concomitant]
     Dosage: UNK UKN, UNK
  4. DESYREL [Concomitant]
     Dosage: 150 MG, UNK
  5. RISPERDAL [Concomitant]
     Dosage: UNK UKN, UNK

REACTIONS (4)
  - Hypophagia [Recovered/Resolved]
  - Hypotension [Recovered/Resolved]
  - Weight decreased [Recovered/Resolved]
  - Urinary incontinence [Recovered/Resolved]
